FAERS Safety Report 12185446 (Version 1)
Quarter: 2016Q1

REPORT INFORMATION
  Report Type: Spontaneous
  Country: US (occurrence: US)
  Receive Date: 20160316
  Receipt Date: 20160316
  Transmission Date: 20160526
  Serious: Yes (Hospitalization)
  Sender: FDA-Public Use
  Company Number: US-PFIZER INC-2016152660

PATIENT
  Age: 36 Year
  Sex: Female

DRUGS (1)
  1. CORTISONE ACETATE. [Suspect]
     Active Substance: CORTISONE ACETATE
     Dosage: 2200 MG, (IN 10 DAYS)

REACTIONS (5)
  - Suicide attempt [Recovered/Resolved]
  - Delusion [Recovered/Resolved]
  - Adjustment disorder with depressed mood [Recovered/Resolved]
  - Substance-induced psychotic disorder [Recovered/Resolved]
  - Hallucination, auditory [Recovered/Resolved]
